FAERS Safety Report 19621187 (Version 1)
Quarter: 2021Q3

REPORT INFORMATION
  Report Type: Spontaneous
  Country: US (occurrence: US)
  Receive Date: 20210728
  Receipt Date: 20210728
  Transmission Date: 20211014
  Serious: Yes (Other)
  Sender: FDA-Public Use
  Company Number: US-GLAXOSMITHKLINE-US2021GSK161643

PATIENT
  Sex: Female

DRUGS (5)
  1. ZANTAC [Suspect]
     Active Substance: RANITIDINE HYDROCHLORIDE
     Indication: HIATUS HERNIA
     Dosage: UNK UNK, QD
     Route: 065
     Dates: start: 199201, end: 200312
  2. RANITIDINE CAPSULE [Suspect]
     Active Substance: RANITIDINE
     Indication: HIATUS HERNIA
     Dosage: UNK UNK, QD
     Route: 065
     Dates: start: 199201, end: 200312
  3. ZANTAC [Suspect]
     Active Substance: RANITIDINE HYDROCHLORIDE
     Indication: HIATUS HERNIA
     Dosage: UNK UNK, QD
     Route: 065
     Dates: start: 199201, end: 200312
  4. RANITIDINE. [Suspect]
     Active Substance: RANITIDINE
     Indication: HIATUS HERNIA
     Dosage: UNK UNK, QD
     Route: 065
     Dates: start: 199701, end: 200312
  5. RANITIDINE. [Suspect]
     Active Substance: RANITIDINE
     Indication: HIATUS HERNIA
     Dosage: UNK, QD
     Route: 065
     Dates: start: 199701, end: 200312

REACTIONS (2)
  - Breast cancer [Unknown]
  - Pancreatic carcinoma [Unknown]
